FAERS Safety Report 12145671 (Version 2)
Quarter: 2017Q1

REPORT INFORMATION
  Report Type: Spontaneous
  Country: US (occurrence: US)
  Receive Date: 20160304
  Receipt Date: 20170301
  Transmission Date: 20170428
  Serious: No
  Sender: FDA-Public Use
  Company Number: US-ABBVIE-16P-163-1561875-00

PATIENT
  Age: 51 Year
  Sex: Male
  Weight: 145.28 kg

DRUGS (15)
  1. TRAZODONE [Concomitant]
     Active Substance: TRAZODONE HYDROCHLORIDE
     Indication: PRODUCT USED FOR UNKNOWN INDICATION
     Dosage: EVERY NIGHT AT BEDTIME
     Route: 048
  2. FUROSEMIDE. [Concomitant]
     Active Substance: FUROSEMIDE
     Indication: PRODUCT USED FOR UNKNOWN INDICATION
     Route: 048
  3. WELLBUTRIN XL [Concomitant]
     Active Substance: BUPROPION HYDROCHLORIDE
     Indication: PRODUCT USED FOR UNKNOWN INDICATION
     Route: 048
  4. HYDROMORPHONE [Concomitant]
     Active Substance: HYDROMORPHONE
     Indication: PAIN
     Dosage: AS NEEDED
     Route: 048
  5. LISINOPRIL. [Concomitant]
     Active Substance: LISINOPRIL
     Indication: HYPERTENSION
     Dates: start: 2006
  6. D-AMPHETAMINE SALT COM XR [Concomitant]
     Indication: PRODUCT USED FOR UNKNOWN INDICATION
     Route: 048
  7. ANDROGEL [Suspect]
     Active Substance: TESTOSTERONE
     Indication: ANDROGEN REPLACEMENT THERAPY
     Dosage: 2 PUMPS DAILY AS DIRECTED
     Route: 061
     Dates: start: 201302, end: 201407
  8. VENLAFAXINE ER [Concomitant]
     Active Substance: VENLAFAXINE HYDROCHLORIDE
     Indication: PRODUCT USED FOR UNKNOWN INDICATION
     Route: 048
  9. HYDROXYZINE PAMOATE. [Concomitant]
     Active Substance: HYDROXYZINE PAMOATE
     Indication: PRODUCT USED FOR UNKNOWN INDICATION
     Route: 048
  10. KLONOPIN [Concomitant]
     Active Substance: CLONAZEPAM
     Indication: PRODUCT USED FOR UNKNOWN INDICATION
     Dosage: 2-3 TABLETS EVERY NIGHT
     Route: 048
  11. ONDANSETRON [Concomitant]
     Active Substance: ONDANSETRON
     Indication: NAUSEA
     Dosage: AS NEEDED
     Route: 048
  12. SAPHRIS [Concomitant]
     Active Substance: ASENAPINE MALEATE
     Indication: PRODUCT USED FOR UNKNOWN INDICATION
     Dosage: EVERY NIGHT AT BEDTIME
     Route: 060
  13. ZOLPIDEM [Concomitant]
     Active Substance: ZOLPIDEM\ZOLPIDEM TARTRATE
     Indication: PRODUCT USED FOR UNKNOWN INDICATION
     Route: 060
  14. BYSTOLIC [Concomitant]
     Active Substance: NEBIVOLOL HYDROCHLORIDE
     Indication: HYPERTENSION
     Route: 048
     Dates: start: 2006
  15. LEXAPRO [Concomitant]
     Active Substance: ESCITALOPRAM OXALATE
     Indication: PRODUCT USED FOR UNKNOWN INDICATION
     Route: 048

REACTIONS (1)
  - Deep vein thrombosis [Unknown]

NARRATIVE: CASE EVENT DATE: 20140505
